FAERS Safety Report 5496729-7 (Version None)
Quarter: 2007Q4

REPORT INFORMATION
  Report Type: 
  Country: None (occurrence: None)
  Receive Date: 20071025
  Receipt Date: 20071015
  Transmission Date: 20080405
  Serious: Yes (Other)
  Sender: FDA-Public Use
  Company Number: JP-AMGEN-US248299

PATIENT
  Age: 75 Year
  Sex: Female

DRUGS (1)
  1. ARANESP [Suspect]
     Indication: DIALYSIS
     Route: 042
     Dates: start: 20070709, end: 20070806

REACTIONS (3)
  - ANOREXIA [None]
  - ECZEMA [None]
  - INSOMNIA [None]
